FAERS Safety Report 21024510 (Version 1)
Quarter: 2022Q2

REPORT INFORMATION
  Report Type: Spontaneous
  Country: GB (occurrence: GB)
  Receive Date: 20220629
  Receipt Date: 20220629
  Transmission Date: 20220720
  Serious: Yes (Disabling, Other)
  Sender: FDA-Public Use
  Company Number: GB-BAUSCH-BL-2022-016164

PATIENT
  Age: 24 Year
  Sex: Female

DRUGS (8)
  1. HYDROCORTISONE BUTYRATE [Suspect]
     Active Substance: HYDROCORTISONE BUTYRATE
     Indication: Eczema
     Route: 065
     Dates: start: 199709, end: 2021
  2. BETAMETHASONE [Suspect]
     Active Substance: BETAMETHASONE
     Indication: Eczema
     Route: 065
  3. BETNOVATE [Suspect]
     Active Substance: BETAMETHASONE
     Indication: Eczema
     Route: 065
     Dates: start: 1998, end: 202201
  4. CLOBETASOL [Suspect]
     Active Substance: CLOBETASOL
     Indication: Product used for unknown indication
     Route: 065
     Dates: start: 2006
  5. CUTIVATE [Suspect]
     Active Substance: FLUTICASONE PROPIONATE
     Indication: Eczema
     Dosage: FLUTICASONE PROPIONATE MICRONISED
     Route: 065
  6. ELOCON [Suspect]
     Active Substance: MOMETASONE FUROATE
     Indication: Eczema
     Route: 065
     Dates: start: 20210413, end: 202201
  7. EUMOVATE [Suspect]
     Active Substance: CLOBETASONE BUTYRATE
     Indication: Eczema
     Dosage: CLOBETASONE BUTYRATE MICRONISED, CLOBETASONE BUTYRATE
     Route: 065
     Dates: start: 20210413, end: 202201
  8. TRIMOVATE [Suspect]
     Active Substance: CLOBETASONE BUTYRATE\NYSTATIN\OXYTETRACYCLINE CALCIUM
     Indication: Product used for unknown indication
     Dosage: CHLORTETRACYCLINE HCL, NYSTATIN, OXYTETRACYCLINE DIHYDRATE, CLOBETASONE BUTYRATE, OXYTETRACYCLINE CA
     Route: 065
     Dates: start: 2005

REACTIONS (11)
  - Skin weeping [Recovering/Resolving]
  - Erythema [Recovering/Resolving]
  - Eye swelling [Recovering/Resolving]
  - Skin exfoliation [Recovering/Resolving]
  - Skin burning sensation [Recovering/Resolving]
  - Rash pruritic [Recovering/Resolving]
  - Skin exfoliation [Recovering/Resolving]
  - Body temperature abnormal [Recovering/Resolving]
  - Paraesthesia [Recovering/Resolving]
  - Skin wrinkling [Recovering/Resolving]
  - Medication error [Unknown]

NARRATIVE: CASE EVENT DATE: 20220101
